FAERS Safety Report 16232450 (Version 3)
Quarter: 2019Q4

REPORT INFORMATION
  Report Type: Spontaneous
  Country: JP (occurrence: JP)
  Receive Date: 20190424
  Receipt Date: 20191109
  Transmission Date: 20200122
  Serious: Yes (Life-Threatening)
  Sender: FDA-Public Use
  Company Number: JP-ROCHE-2307160

PATIENT
  Age: 65 Year
  Sex: Male

DRUGS (4)
  1. XOFLUZA [Suspect]
     Active Substance: BALOXAVIR MARBOXIL
     Indication: INFLUENZA
     Dosage: START DATE: 19/JAN/2019
     Route: 048
     Dates: end: 20190119
  2. JANUVIA [Concomitant]
     Active Substance: SITAGLIPTIN PHOSPHATE
  3. ILUAMIX [Concomitant]
  4. CALONAL [Concomitant]
     Active Substance: ACETAMINOPHEN

REACTIONS (1)
  - Haemorrhagic diathesis [Not Recovered/Not Resolved]

NARRATIVE: CASE EVENT DATE: 20190125
